FAERS Safety Report 6579745-3 (Version None)
Quarter: 2010Q1

REPORT INFORMATION
  Report Type: 
  Country: None (occurrence: None)
  Receive Date: 20100212
  Receipt Date: 20100209
  Transmission Date: 20100710
  Serious: Yes (Death)
  Sender: FDA-Public Use
  Company Number: A0843946A

PATIENT
  Sex: Male
  Weight: 102.3 kg

DRUGS (1)
  1. ROSIGLITAZONE MALEATE [Suspect]
     Indication: DIABETES MELLITUS
     Route: 048

REACTIONS (3)
  - CORONARY ARTERY DISEASE [None]
  - DIABETIC KETOACIDOSIS [None]
  - RENAL FAILURE [None]
